FAERS Safety Report 7153084-4 (Version None)
Quarter: 2010Q4

REPORT INFORMATION
  Report Type: 
  Country: None (occurrence: None)
  Receive Date: 20101130
  Receipt Date: 20101115
  Transmission Date: 20110411
  Serious: Yes (Death)
  Sender: FDA-Public Use
  Company Number: 022065

PATIENT
  Sex: Male

DRUGS (1)
  1. CIMZIA [Suspect]
     Indication: CROHN'S DISEASE
     Dosage: (400 MG  1X/4 WEEKS SUBCUTANEOUS)
     Route: 058
     Dates: start: 20101025

REACTIONS (2)
  - MALAISE [None]
  - MYOCARDIAL INFARCTION [None]
